FAERS Safety Report 7587509-7 (Version None)
Quarter: 2011Q3

REPORT INFORMATION
  Report Type: 
  Country: None (occurrence: None)
  Receive Date: 20110704
  Receipt Date: 20110630
  Transmission Date: 20111222
  Serious: Yes (Other)
  Sender: FDA-Public Use
  Company Number: DE-BRISTOL-MYERS SQUIBB COMPANY-15869555

PATIENT
  Age: 21 Year
  Sex: Female

DRUGS (5)
  1. LAMICTAL [Suspect]
     Dosage: AND 19 TABLETS OF LAMICTAL 10
  2. AMOXICILLIN [Suspect]
     Dosage: 20 TABLETS OF AMOXICILLIN 1000
  3. FLUOXETINE HCL [Suspect]
     Dosage: 19 TABLETS OF FLUOXETIN 40
  4. ABILIFY [Suspect]
     Dosage: 27 TABS
  5. ALCOHOL [Suspect]

REACTIONS (4)
  - SUICIDAL BEHAVIOUR [None]
  - MULTIPLE DRUG OVERDOSE INTENTIONAL [None]
  - VOMITING [None]
  - CONVULSION [None]
